FAERS Safety Report 9033517 (Version 1)
Quarter: 2013Q1

REPORT INFORMATION
  Report Type: Spontaneous
  Country: GB (occurrence: GB)
  Receive Date: 20130128
  Receipt Date: 20130128
  Transmission Date: 20140127
  Serious: Yes (Death, Life-Threatening, Hospitalization)
  Sender: FDA-Public Use
  Company Number: GB-009507513-1301GBR011867

PATIENT
  Age: 43 Year
  Sex: Female

DRUGS (2)
  1. VICTRELIS [Suspect]
     Indication: HEPATITIS C
     Dosage: 2400 MG, QD
     Route: 048
     Dates: start: 201210, end: 201212
  2. INTERFERON (UNSPECIFIED) [Suspect]

REACTIONS (2)
  - Death [Fatal]
  - Haemorrhoid operation [Unknown]
